FAERS Safety Report 7341194-8 (Version None)
Quarter: 2011Q1

REPORT INFORMATION
  Report Type: 
  Country: None (occurrence: None)
  Receive Date: 20110309
  Receipt Date: 20110301
  Transmission Date: 20110831
  Serious: Yes (Hospitalization)
  Sender: FDA-Public Use
  Company Number: B0704886A

PATIENT
  Sex: Male
  Weight: 99 kg

DRUGS (7)
  1. EXFORGE [Concomitant]
     Dates: start: 20070831
  2. OMEPRAZOLE [Concomitant]
     Dosage: 40MG PER DAY
     Dates: start: 20030919
  3. PROPAFENONE [Suspect]
     Dosage: 150MG TWICE PER DAY
     Route: 065
     Dates: start: 20110212, end: 20110216
  4. SINGULAIR [Concomitant]
     Dosage: 10MG PER DAY
     Dates: start: 20050711
  5. SYMBICORT [Concomitant]
     Route: 055
     Dates: start: 20030919
  6. METFORMIN HYDROCHLORIDE [Concomitant]
     Dosage: 500MG TWICE PER DAY
     Dates: start: 20100706
  7. SIMVASTATIN [Concomitant]
     Dosage: 20MG PER DAY
     Dates: start: 20070830

REACTIONS (5)
  - HYPOAESTHESIA [None]
  - FATIGUE [None]
  - CHEST PAIN [None]
  - NAUSEA [None]
  - RESTLESSNESS [None]
